FAERS Safety Report 11293223 (Version 1)
Quarter: 2015Q3

REPORT INFORMATION
  Report Type: Other
  Country: GB (occurrence: GB)
  Receive Date: 20150722
  Receipt Date: 20150722
  Transmission Date: 20151125
  Serious: Yes (Hospitalization, Other)
  Sender: FDA-Public Use
  Company Number: GB-MYLANLABS-2015M1023270

PATIENT

DRUGS (19)
  1. TRAMADOL. [Concomitant]
     Active Substance: TRAMADOL
     Indication: PAIN
     Dosage: UNK
  2. ZYDOL [Concomitant]
     Active Substance: TRAMADOL HYDROCHLORIDE
     Indication: PRODUCT USED FOR UNKNOWN INDICATION
     Dosage: UNK
  3. AZATHIOPRINE. [Suspect]
     Active Substance: AZATHIOPRINE
     Indication: RHEUMATOID ARTHRITIS
     Dosage: DOSE INCREASED
     Route: 065
     Dates: start: 201107
  4. HUMIRA [Suspect]
     Active Substance: ADALIMUMAB
     Dosage: UNK,  (1 IN 2 WEKS)
     Route: 065
     Dates: start: 20130516
  5. DEXCEL-PHARMA DICLOFENAC [Concomitant]
     Indication: PRODUCT USED FOR UNKNOWN INDICATION
     Dosage: UNK
     Dates: start: 2006, end: 2009
  6. MELOXICAM. [Concomitant]
     Active Substance: MELOXICAM
     Indication: PRODUCT USED FOR UNKNOWN INDICATION
     Dosage: UNK
     Dates: start: 200906
  7. PREDNISOLONE. [Concomitant]
     Active Substance: PREDNISOLONE
     Indication: PRODUCT USED FOR UNKNOWN INDICATION
     Dosage: LOW DOSE
     Dates: start: 201103
  8. SALAZOPYRIN [Concomitant]
     Active Substance: SULFASALAZINE
     Indication: PRODUCT USED FOR UNKNOWN INDICATION
     Dosage: UNK
     Dates: start: 200906
  9. SALAZOPYRIN [Concomitant]
     Active Substance: SULFASALAZINE
     Dosage: UNK
     Dates: start: 2006, end: 2009
  10. AZATHIOPRINE. [Suspect]
     Active Substance: AZATHIOPRINE
     Indication: CROHN^S DISEASE
     Dosage: UNK
     Route: 065
  11. FOLIC ACID. [Concomitant]
     Active Substance: FOLIC ACID
     Indication: PRODUCT USED FOR UNKNOWN INDICATION
     Dosage: UNK
     Dates: start: 200906
  12. PREDNISOLONE. [Concomitant]
     Active Substance: PREDNISOLONE
     Dosage: EVERY 3-4 WEEKS
     Dates: start: 2006, end: 200906
  13. HUMIRA [Suspect]
     Active Substance: ADALIMUMAB
     Indication: PAIN
     Dosage: UNK (1 IN 2 DAYS)
     Route: 065
     Dates: start: 200906
  14. HUMIRA [Suspect]
     Active Substance: ADALIMUMAB
     Dosage: UNK (1 IN 2 DAYS)
     Route: 065
     Dates: start: 201208
  15. METHOTREXATE [Concomitant]
     Active Substance: METHOTREXATE
     Indication: PRODUCT USED FOR UNKNOWN INDICATION
     Dosage: UNK
     Dates: start: 2004
  16. AZATHIOPRINE. [Suspect]
     Active Substance: AZATHIOPRINE
     Dosage: LOW DOSE
     Route: 065
     Dates: start: 201103
  17. HUMIRA [Suspect]
     Active Substance: ADALIMUMAB
     Dosage: UNK,  (1 IN 2 WEKS)
     Route: 065
  18. METHOTREXATE [Concomitant]
     Active Substance: METHOTREXATE
     Dosage: UNK
     Dates: start: 200906
  19. SALAZOPYRIN [Concomitant]
     Active Substance: SULFASALAZINE
     Dosage: UNK
     Dates: start: 2000

REACTIONS (13)
  - Colon neoplasm [Unknown]
  - General physical health deterioration [Unknown]
  - Liver disorder [Unknown]
  - Pain [Recovering/Resolving]
  - Rheumatoid arthritis [Unknown]
  - Cerebrovascular accident [Recovered/Resolved with Sequelae]
  - Speech disorder [Unknown]
  - Pneumonia legionella [Unknown]
  - Abdominal pain upper [Unknown]
  - Immunodeficiency [Unknown]
  - Pneumonia [Unknown]
  - Osteoporosis [Unknown]
  - Crohn^s disease [Unknown]

NARRATIVE: CASE EVENT DATE: 2010
